APPROVED DRUG PRODUCT: MEPERIDINE HYDROCHLORIDE
Active Ingredient: MEPERIDINE HYDROCHLORIDE
Strength: 100MG
Dosage Form/Route: TABLET;ORAL
Application: A040893 | Product #003
Applicant: GENUS LIFESCIENCES INC
Approved: Jun 24, 2009 | RLD: No | RS: No | Type: DISCN